FAERS Safety Report 9873332 (Version 2)
Quarter: 2014Q1

REPORT INFORMATION
  Report Type: Other
  Country: US (occurrence: US)
  Receive Date: 20140206
  Receipt Date: 20140206
  Transmission Date: 20141002
  Serious: No
  Sender: FDA-Public Use
  Company Number: US-ACORDA-ACO_101015_2013

PATIENT
  Sex: Female
  Weight: 63.49 kg

DRUGS (3)
  1. AMPYRA [Suspect]
     Indication: MULTIPLE SCLEROSIS
     Dosage: 10 MG, BID
     Route: 065
  2. AMPYRA [Suspect]
     Dosage: 10 MG, QD
     Route: 065
  3. AMPYRA [Suspect]
     Dosage: 10 MG, BID
     Route: 065

REACTIONS (4)
  - Limb discomfort [Recovered/Resolved]
  - Hypersensitivity [Not Recovered/Not Resolved]
  - Nasopharyngitis [Not Recovered/Not Resolved]
  - Inappropriate schedule of drug administration [Unknown]
